FAERS Safety Report 11331782 (Version 1)
Quarter: 2015Q3

REPORT INFORMATION
  Report Type: Spontaneous
  Country: US (occurrence: US)
  Receive Date: 20150803
  Receipt Date: 20150803
  Transmission Date: 20151125
  Serious: Yes (Other)
  Sender: FDA-Public Use
  Company Number: US-ELI_LILLY_AND_COMPANY-US200804000953

PATIENT
  Age: 41 Year
  Sex: Female
  Weight: 99.77 kg

DRUGS (2)
  1. ZYPREXA [Suspect]
     Active Substance: OLANZAPINE
     Dosage: 20 MG, DAILY (1/D)
  2. ZYPREXA [Suspect]
     Active Substance: OLANZAPINE
     Indication: BIPOLAR DISORDER
     Dosage: 65 MG, DAILY (1/D)

REACTIONS (3)
  - Hunger [Not Recovered/Not Resolved]
  - Prescribed overdose [Recovered/Resolved]
  - Weight increased [Recovering/Resolving]

NARRATIVE: CASE EVENT DATE: 2001
